FAERS Safety Report 5229128-3 (Version None)
Quarter: 2007Q1

REPORT INFORMATION
  Report Type: 
  Country: None (occurrence: None)
  Receive Date: 20061201
  Receipt Date: 20060818
  Transmission Date: 20070707
  Serious: No
  Sender: FDA-Public Use
  Company Number: US200608004288

PATIENT
  Age: 30 Year
  Sex: Female

DRUGS (3)
  1. CYMBALTA [Suspect]
     Indication: DEPRESSION
     Dosage: 60 MG, DAILY (1/D)
     Dates: start: 20060816
  2. FLEXERIL [Concomitant]
  3. ANALGESICS [Concomitant]

REACTIONS (3)
  - DISTURBANCE IN ATTENTION [None]
  - HEART RATE INCREASED [None]
  - PALPITATIONS [None]
